FAERS Safety Report 10165165 (Version 1)
Quarter: 2014Q2

REPORT INFORMATION
  Report Type: Spontaneous
  Country: US (occurrence: US)
  Receive Date: 20140510
  Receipt Date: 20140510
  Transmission Date: 20141212
  Serious: No
  Sender: FDA-Public Use
  Company Number: US-BRISTOL-MYERS SQUIBB COMPANY-20333662

PATIENT
  Age: 68 Year
  Sex: Female

DRUGS (1)
  1. BYDUREON [Suspect]
     Dosage: 2ND INJECTION 17FEB14,24FEB14
     Dates: start: 20140206

REACTIONS (4)
  - Injection site bruising [Unknown]
  - Injection site pruritus [Unknown]
  - Injection site erythema [Unknown]
  - Injection site swelling [Unknown]
